FAERS Safety Report 7978243-X (Version None)
Quarter: 2011Q4

REPORT INFORMATION
  Report Type: 
  Country: None (occurrence: None)
  Receive Date: 20111214
  Receipt Date: 20111208
  Transmission Date: 20120403
  Serious: Yes (Congenital Anomaly, Other)
  Sender: FDA-Public Use
  Company Number: US-PFIZER INC-2011258819

PATIENT
  Sex: Male
  Weight: 3.9 kg

DRUGS (1)
  1. ZOLOFT [Suspect]
     Dosage: 30 MG, UNK
     Route: 064

REACTIONS (8)
  - FALLOT'S TETRALOGY [None]
  - FAILURE TO THRIVE [None]
  - MATERNAL EXPOSURE TIMING UNSPECIFIED [None]
  - CONGENITAL PULMONARY VALVE ATRESIA [None]
  - DEVELOPMENTAL DELAY [None]
  - PATENT DUCTUS ARTERIOSUS [None]
  - SPEECH DISORDER DEVELOPMENTAL [None]
  - VENTRICULAR SEPTAL DEFECT [None]
